FAERS Safety Report 4997003-5 (Version None)
Quarter: 2006Q2

REPORT INFORMATION
  Report Type: 
  Country: None (occurrence: None)
  Receive Date: 20060505
  Receipt Date: 20060419
  Transmission Date: 20061013
  Serious: Yes (Other)
  Sender: FDA-Public Use
  Company Number: US-2006-009438

PATIENT
  Age: 30 Year
  Sex: Female

DRUGS (3)
  1. CAMPATH [Suspect]
     Indication: RENAL TRANSPLANT
     Dosage: 1.2 MG/KGX 4 DOSES (PRE-OP)
  2. SIROLIMUS (SIROLIMUS) [Concomitant]
  3. CORTICOSTEROIDS [Concomitant]

REACTIONS (4)
  - AUTOIMMUNE THYROIDITIS [None]
  - HYPERTHYROIDISM [None]
  - KIDNEY TRANSPLANT REJECTION [None]
  - RENAL HYPERTROPHY [None]
